FAERS Safety Report 18774311 (Version 1)
Quarter: 2021Q1

REPORT INFORMATION
  Report Type: Spontaneous
  Country: JP (occurrence: JP)
  Receive Date: 20210122
  Receipt Date: 20210122
  Transmission Date: 20210419
  Serious: Yes (Other)
  Sender: FDA-Public Use
  Company Number: JP-ABBVIE-21K-087-3740504-00

PATIENT
  Age: 45 Year
  Sex: Female

DRUGS (11)
  1. CHLORPROMAZINE HYDROCHLORIDE. [Concomitant]
     Active Substance: CHLORPROMAZINE HYDROCHLORIDE
     Indication: ANXIETY
  2. FLUVOXAMINE MALEATE. [Suspect]
     Active Substance: FLUVOXAMINE MALEATE
     Dosage: DECREASED
     Route: 048
  3. MIRTAZAPINE. [Concomitant]
     Active Substance: MIRTAZAPINE
     Indication: APATHY
  4. RISPERIDONE. [Concomitant]
     Active Substance: RISPERIDONE
     Indication: NAUSEA
  5. TANDOSPIRONE CITRATE [Concomitant]
     Active Substance: TANDOSPIRONE CITRATE
     Indication: APATHY
  6. FLUVOXAMINE MALEATE. [Suspect]
     Active Substance: FLUVOXAMINE MALEATE
     Indication: ADJUSTMENT DISORDER
     Route: 048
  7. FLUVOXAMINE MALEATE. [Suspect]
     Active Substance: FLUVOXAMINE MALEATE
     Dosage: INCREASED
     Route: 048
  8. RISPERIDONE. [Concomitant]
     Active Substance: RISPERIDONE
     Indication: HALLUCINATION, AUDITORY
  9. RISPERIDONE. [Concomitant]
     Active Substance: RISPERIDONE
     Indication: HEADACHE
  10. RISPERIDONE. [Concomitant]
     Active Substance: RISPERIDONE
     Indication: PERSONAL RELATIONSHIP ISSUE
  11. BIPERIDEN LACTATE [Concomitant]
     Active Substance: BIPERIDEN LACTATE
     Indication: DYSKINESIA
     Route: 030

REACTIONS (1)
  - General symptom [Recovered/Resolved]
